FAERS Safety Report 6715309-6 (Version None)
Quarter: 2010Q2

REPORT INFORMATION
  Report Type: 
  Country: None (occurrence: None)
  Receive Date: 20100507
  Receipt Date: 20100428
  Transmission Date: 20101027
  Serious: Yes (Death, Other)
  Sender: FDA-Public Use
  Company Number: US-ABBOTT-10P-163-0640235-00

PATIENT
  Sex: Male
  Weight: 86.26 kg

DRUGS (9)
  1. TRILIPIX [Suspect]
     Indication: BLOOD TRIGLYCERIDES INCREASED
     Dates: start: 20091001
  2. NIASPAN [Concomitant]
     Indication: HIGH DENSITY LIPOPROTEIN DECREASED
     Dates: start: 20091001
  3. ASPIRIN [Concomitant]
     Indication: DRUG USE FOR UNKNOWN INDICATION
  4. CIALIS [Concomitant]
     Indication: DRUG USE FOR UNKNOWN INDICATION
  5. GLUCOPHAGE [Concomitant]
     Indication: DRUG USE FOR UNKNOWN INDICATION
  6. LISINOPRIL [Concomitant]
     Indication: DRUG USE FOR UNKNOWN INDICATION
  7. VYTORIN [Concomitant]
     Indication: DRUG USE FOR UNKNOWN INDICATION
     Dosage: 10/80 MG
  8. FISH OIL [Concomitant]
     Indication: DRUG USE FOR UNKNOWN INDICATION
  9. CALCIUM [Concomitant]
     Indication: DRUG USE FOR UNKNOWN INDICATION

REACTIONS (4)
  - AORTIC STENOSIS [None]
  - HEART VALVE INCOMPETENCE [None]
  - LABILE BLOOD PRESSURE [None]
  - VASOPLEGIA SYNDROME [None]
